FAERS Safety Report 9344776 (Version 1)
Quarter: 2013Q2

REPORT INFORMATION
  Report Type: Spontaneous
  Country: DE (occurrence: DE)
  Receive Date: 20130612
  Receipt Date: 20130612
  Transmission Date: 20140414
  Serious: Yes (Death, Hospitalization)
  Sender: FDA-Public Use
  Company Number: DE-TEVA-409776GER

PATIENT
  Sex: Female
  Weight: 69 kg

DRUGS (8)
  1. CICLOSPORIN [Suspect]
     Indication: PYODERMA GANGRENOSUM
     Dosage: 100-0-50
     Route: 048
     Dates: start: 201302, end: 201303
  2. L-THYROXIN [Concomitant]
  3. VALPROAT [Concomitant]
  4. NOVALGIN [Concomitant]
  5. PREDNISOLON [Concomitant]
  6. PANTOPRAZOL [Concomitant]
  7. TARGIN [Concomitant]
  8. CALCIUM D [Concomitant]

REACTIONS (1)
  - Haemolytic uraemic syndrome [Fatal]
